FAERS Safety Report 16104049 (Version 1)
Quarter: 2019Q1

REPORT INFORMATION
  Report Type: Spontaneous
  Country: US (occurrence: US)
  Receive Date: 20190322
  Receipt Date: 20190322
  Transmission Date: 20190418
  Serious: No
  Sender: FDA-Public Use
  Company Number: US-ASTRAZENECA-2019SE41067

PATIENT

DRUGS (2)
  1. OMEPRAZOLE. [Suspect]
     Active Substance: OMEPRAZOLE
     Route: 048
  2. XELJANZ XR [Suspect]
     Active Substance: TOFACITINIB CITRATE
     Dosage: 11.0MG UNKNOWN
     Route: 065

REACTIONS (9)
  - Abdominal pain upper [Unknown]
  - Hepatic enzyme increased [Unknown]
  - Weight increased [Unknown]
  - Product dose omission [Unknown]
  - Fatigue [Unknown]
  - Swelling [Unknown]
  - Muscle spasms [Unknown]
  - Pain [Unknown]
  - Condition aggravated [Unknown]
